FAERS Safety Report 8912360 (Version 3)
Quarter: 2013Q1

REPORT INFORMATION
  Report Type: Report from Study
  Country: IT (occurrence: IT)
  Receive Date: 20121116
  Receipt Date: 20130207
  Transmission Date: 20140127
  Serious: Yes (Hospitalization)
  Sender: FDA-Public Use
  Company Number: IT-CELGENEUS-083-21880-12091751

PATIENT
  Age: 68 Year
  Sex: Male

DRUGS (19)
  1. REVLIMID [Suspect]
     Indication: PLASMA CELL MYELOMA
     Dosage: 10 MILLIGRAM
     Route: 048
     Dates: start: 20120724, end: 20120802
  2. DEXAMETHASONE [Suspect]
     Indication: PLASMA CELL MYELOMA
     Dosage: 40 MILLIGRAM
     Route: 048
     Dates: start: 20120724, end: 20120731
  3. PANTOPRAZOLE [Concomitant]
     Indication: PRODUCT USED FOR UNKNOWN INDICATION
     Route: 065
     Dates: start: 20120724
  4. ACETYLSALICYLIC ACID [Concomitant]
     Indication: PRODUCT USED FOR UNKNOWN INDICATION
     Route: 065
     Dates: start: 20120724
  5. OXYCODONE [Concomitant]
     Indication: PRODUCT USED FOR UNKNOWN INDICATION
     Route: 065
     Dates: start: 20120718
  6. ENALAPRIL [Concomitant]
     Indication: PRODUCT USED FOR UNKNOWN INDICATION
     Route: 065
     Dates: start: 20120718
  7. ALLOPURINOL [Concomitant]
     Indication: PRODUCT USED FOR UNKNOWN INDICATION
     Route: 065
     Dates: start: 20120718, end: 20120730
  8. PREDNISONE [Concomitant]
     Indication: PRODUCT USED FOR UNKNOWN INDICATION
     Route: 065
     Dates: start: 20120803, end: 20120806
  9. ACICLOVIR [Concomitant]
     Indication: ORAL HERPES
     Route: 065
     Dates: start: 20120724, end: 20120730
  10. LACTULOSE [Concomitant]
     Indication: PRODUCT USED FOR UNKNOWN INDICATION
     Route: 065
     Dates: start: 20120724, end: 20120806
  11. CETIRIZINE [Concomitant]
     Indication: ADVERSE EVENT
     Route: 065
     Dates: start: 20120803, end: 20120806
  12. REPAGLINIDE [Concomitant]
     Indication: ADVERSE EVENT
     Route: 065
     Dates: start: 20120808
  13. LEVOFLOXACINE [Concomitant]
     Indication: ADVERSE EVENT
     Route: 065
     Dates: start: 20120811, end: 20120811
  14. CEFEPIME [Concomitant]
     Indication: ADVERSE EVENT
     Route: 065
     Dates: start: 20120811, end: 20120811
  15. HYDRATION [Concomitant]
     Indication: PRODUCT USED FOR UNKNOWN INDICATION
     Route: 065
     Dates: start: 20120807, end: 20120808
  16. EPOETIN [Concomitant]
     Indication: PRODUCT USED FOR UNKNOWN INDICATION
     Route: 065
     Dates: start: 20120828, end: 20120911
  17. FRAXIPARINE [Concomitant]
     Indication: PRODUCT USED FOR UNKNOWN INDICATION
     Route: 065
     Dates: start: 20120828, end: 20120911
  18. CANRENONE [Concomitant]
     Indication: PRODUCT USED FOR UNKNOWN INDICATION
     Route: 065
     Dates: start: 20120828, end: 20120911
  19. TAMSULOSIN [Concomitant]
     Indication: PRODUCT USED FOR UNKNOWN INDICATION
     Route: 065
     Dates: start: 20120828

REACTIONS (3)
  - Guillain-Barre syndrome [Recovered/Resolved]
  - Transaminases increased [Recovered/Resolved]
  - Renal failure [Recovered/Resolved]
